FAERS Safety Report 8066073-2 (Version None)
Quarter: 2012Q1

REPORT INFORMATION
  Report Type: 
  Country: None (occurrence: None)
  Receive Date: 20120124
  Receipt Date: 20120117
  Transmission Date: 20120608
  Serious: Yes (Congenital Anomaly, Other)
  Sender: FDA-Public Use
  Company Number: US-PFIZER INC-2011293445

PATIENT
  Sex: Male
  Weight: 2.4 kg

DRUGS (6)
  1. ALBUTEROL [Concomitant]
     Dosage: UNK
     Route: 064
     Dates: start: 20030922
  2. MULTI-VITAMINS [Concomitant]
     Dosage: UNK
     Route: 064
     Dates: start: 20031013
  3. PREDNISONE [Concomitant]
     Dosage: UNK
     Route: 064
     Dates: start: 20040414
  4. ZOLOFT [Suspect]
     Dosage: 50 UNKNOWN UNITS, UNK
     Route: 064
     Dates: start: 20040301
  5. DIPHENHYDRAMINE [Concomitant]
     Dosage: UNK
     Route: 064
     Dates: start: 20030922
  6. ZOLOFT [Suspect]
     Indication: DEPRESSION
     Dosage: 50 MG, HALF TABLET PER DAY
     Route: 064
     Dates: start: 20030521

REACTIONS (4)
  - HEART DISEASE CONGENITAL [None]
  - MATERNAL EXPOSURE TIMING UNSPECIFIED [None]
  - PENILE TORSION [None]
  - HYPOSPADIAS [None]
